FAERS Safety Report 4805647-6 (Version None)
Quarter: 2005Q4

REPORT INFORMATION
  Report Type: 
  Country: None (occurrence: None)
  Receive Date: 20051018
  Receipt Date: 20051006
  Transmission Date: 20060501
  Serious: Yes (Other)
  Sender: FDA-Public Use
  Company Number: 2005056019

PATIENT
  Age: 75 Year
  Sex: 0
  Weight: 81.6475 kg

DRUGS (10)
  1. ZOLOFT [Suspect]
     Indication: DEPRESSION
     Dosage: 50 MG (50 MG, 1 IN 1 D), ORAL
     Route: 048
  2. DETROL LA [Suspect]
     Indication: HYPERTONIC BLADDER
     Dosage: 4 MG (4 MG, 1 IN 1 D), ORAL
     Route: 048
     Dates: start: 20010101
  3. DITROPAN XL [Suspect]
     Indication: ILL-DEFINED DISORDER
     Dates: start: 20050301
  4. BETOPIC-S (BETAXOLOL HYDROCHLORIDE) [Concomitant]
  5. ANTIVERT   PFIZER    (MECLOZINE HYDROCHLORIDE) [Concomitant]
  6. DONNATAL (ATROPINE SULFATE, HYOSCINE HYDROBROMIDE, HYOSCYAMINE SULFATE [Concomitant]
  7. ZANTAC [Concomitant]
  8. COZAAR [Concomitant]
  9. LOPRESSOR [Concomitant]
  10. NORVASC [Concomitant]

REACTIONS (12)
  - ARTHRITIS [None]
  - BLADDER PAIN [None]
  - BLADDER PROLAPSE [None]
  - BLOOD CHOLESTEROL INCREASED [None]
  - CHOLELITHIASIS [None]
  - CONDITION AGGRAVATED [None]
  - CONSTIPATION [None]
  - DRUG INEFFECTIVE [None]
  - DRY MOUTH [None]
  - MACULAR DEGENERATION [None]
  - URINARY INCONTINENCE [None]
  - VISUAL ACUITY REDUCED [None]
